FAERS Safety Report 20002368 (Version 18)
Quarter: 2022Q4

REPORT INFORMATION
  Report Type: Spontaneous
  Country: US (occurrence: US)
  Receive Date: 20211027
  Receipt Date: 20221230
  Transmission Date: 20230112
  Serious: No
  Sender: FDA-Public Use
  Company Number: US-PFIZER INC-2021665252

PATIENT
  Age: 78 Year
  Sex: Female

DRUGS (5)
  1. EUCRISA [Suspect]
     Active Substance: CRISABOROLE
     Indication: Eczema
     Dosage: 1 DF, 2X/DAY (APPLY A SMALL AMOUNT TO AFFECTED AREA TWICE DAILY)
     Route: 061
  2. EUCRISA [Suspect]
     Active Substance: CRISABOROLE
     Indication: Pruritus
     Dosage: 100 MG, 2X/DAY
     Route: 061
  3. EUCRISA [Suspect]
     Active Substance: CRISABOROLE
     Indication: Rash
     Dosage: APPLY 0.5 -1 GRAM TO AFFECTED AREA TWICE A DAY AS NEEDED
     Route: 061
  4. EUCRISA [Suspect]
     Active Substance: CRISABOROLE
     Indication: Dermatitis atopic
  5. EUCRISA [Suspect]
     Active Substance: CRISABOROLE
     Indication: Dermatitis contact

REACTIONS (6)
  - Product dispensing error [Unknown]
  - Therapeutic response unexpected [Recovering/Resolving]
  - Condition aggravated [Unknown]
  - Staphylococcal skin infection [Recovered/Resolved]
  - Off label use [Unknown]
  - Intentional product misuse [Unknown]
